FAERS Safety Report 5314775-0 (Version None)
Quarter: 2007Q2

REPORT INFORMATION
  Report Type: 
  Country: None (occurrence: None)
  Receive Date: 20070502
  Receipt Date: 20070501
  Transmission Date: 20071010
  Serious: Yes (Disabling, Congenital Anomaly)
  Sender: FDA-Public Use
  Company Number: US-GLAXOSMITHKLINE-A0638770A

PATIENT
  Sex: Female

DRUGS (2)
  1. PAXIL [Suspect]
     Dosage: 20MG PER DAY
     Dates: start: 19990101, end: 20000101
  2. PROZAC [Suspect]
     Dosage: 10MG PER DAY

REACTIONS (10)
  - ABASIA [None]
  - CONSTIPATION [None]
  - DEVELOPMENTAL DELAY [None]
  - DRUG EXPOSURE DURING PREGNANCY [None]
  - DYSLEXIA [None]
  - EATING DISORDER [None]
  - ENAMEL ANOMALY [None]
  - HYPOTONIA [None]
  - LEARNING DISABILITY [None]
  - VOMITING [None]
